FAERS Safety Report 4982216-9 (Version None)
Quarter: 2006Q2

REPORT INFORMATION
  Report Type: 
  Country: None (occurrence: None)
  Receive Date: 20060421
  Receipt Date: 20060410
  Transmission Date: 20061013
  Serious: Yes (Death)
  Sender: FDA-Public Use
  Company Number: T200600178

PATIENT
  Age: 81 Year
  Sex: Male
  Weight: 78 kg

DRUGS (3)
  1. RESTORIL [Suspect]
     Indication: INSOMNIA
     Dates: start: 20050601
  2. ESZOPICLONE (ESZOPICLONE) [Suspect]
     Indication: INSOMNIA
     Dosage: 2 MG, QD, HS, ORAL
     Route: 048
     Dates: start: 20050531, end: 20050601
  3. AMBIEN [Suspect]
     Indication: INSOMNIA
     Dates: start: 20050601

REACTIONS (5)
  - ANXIETY [None]
  - CARDIAC FAILURE CONGESTIVE [None]
  - CONFUSIONAL STATE [None]
  - DRUG INEFFECTIVE [None]
  - INSOMNIA [None]
